FAERS Safety Report 9098487 (Version 2)
Quarter: 2013Q2

REPORT INFORMATION
  Report Type: Report from Study
  Country: GB (occurrence: GB)
  Receive Date: 20130213
  Receipt Date: 20130612
  Transmission Date: 20140414
  Serious: Yes (Hospitalization)
  Sender: FDA-Public Use
  Company Number: PHHY2012GB089600

PATIENT
  Age: 33 Year
  Sex: Female
  Weight: 57.9 kg

DRUGS (1)
  1. ICL670A [Suspect]
     Indication: IRON OVERLOAD
     Dosage: 1000 MG
     Route: 048
     Dates: start: 20110513, end: 20120714

REACTIONS (9)
  - Upper respiratory tract infection [Recovered/Resolved]
  - Asthenia [Recovered/Resolved]
  - Chest pain [Recovered/Resolved]
  - Palpitations [Recovered/Resolved]
  - Musculoskeletal pain [Recovered/Resolved]
  - Arthralgia [Recovered/Resolved]
  - Cardiomegaly [Unknown]
  - Dyspnoea [Recovered/Resolved]
  - Exposure during pregnancy [Unknown]
